FAERS Safety Report 6840098-4 (Version None)
Quarter: 2010Q3

REPORT INFORMATION
  Report Type: 
  Country: None (occurrence: None)
  Receive Date: 20100713
  Receipt Date: 20100713
  Transmission Date: 20110219
  Serious: Yes (Life-Threatening)
  Sender: FDA-Public Use
  Company Number: None

PATIENT
  Sex: Female
  Weight: 63.5036 kg

DRUGS (5)
  1. BUDESONIDE [Suspect]
     Indication: ASTHMA
     Dosage: 2 RESPULES DAILY
     Dates: start: 20090609, end: 20090801
  2. ALBUTEROL [Concomitant]
  3. XOLAIR [Concomitant]
  4. ENBREL [Concomitant]
  5. SYMBICORT [Concomitant]

REACTIONS (6)
  - ASTHENIA [None]
  - COUGH [None]
  - DYSPNOEA [None]
  - HEADACHE [None]
  - PRODUCT SUBSTITUTION ISSUE [None]
  - WHEEZING [None]
